FAERS Safety Report 6484791-4 (Version None)
Quarter: 2009Q4

REPORT INFORMATION
  Report Type: 
  Country: None (occurrence: None)
  Receive Date: 20091209
  Receipt Date: 20081212
  Transmission Date: 20100525
  Serious: No
  Sender: FDA-Public Use
  Company Number: A0760352A

PATIENT
  Age: 58 Year
  Sex: Male

DRUGS (15)
  1. AVANDAMET [Suspect]
     Route: 048
     Dates: start: 20081001
  2. LEXAPRO [Concomitant]
  3. ASPIRIN [Concomitant]
  4. ALLOPURINOL [Concomitant]
  5. HYDROCHLORTHIAZID [Concomitant]
  6. ATENOLOL [Concomitant]
  7. VICODIN [Concomitant]
  8. CRESTOR [Concomitant]
  9. INDOMETHACIN [Concomitant]
  10. UNKNOWN MEDICATION [Concomitant]
  11. STOOL SOFTENER [Concomitant]
  12. OXYBUTYNIN CHLORIDE [Concomitant]
  13. FOLIC ACID [Concomitant]
  14. PEPCID [Concomitant]
  15. TRICOR [Concomitant]

REACTIONS (1)
  - CHEST PAIN [None]
